FAERS Safety Report 6526807-2 (Version None)
Quarter: 2009Q4

REPORT INFORMATION
  Report Type: 
  Country: None (occurrence: None)
  Receive Date: 20091230
  Receipt Date: 20091216
  Transmission Date: 20100525
  Serious: Yes (Other)
  Sender: FDA-Public Use
  Company Number: 0912-LIT-VANT-0184

PATIENT
  Age: 69 Year
  Sex: Male

DRUGS (8)
  1. VANTAS [Suspect]
     Indication: PROSTATE CANCER
     Dosage: 1 IN 1 Y, SUB Q.IMPLANT
     Dates: start: 20090101, end: 20090101
  2. KETOCONAZOLE [Suspect]
     Indication: PROSTATE CANCER
  3. HYDROCORTONE [Suspect]
     Indication: PROSTATE CANCER
  4. TENORMIN [Concomitant]
  5. ADALAT [Concomitant]
  6. NEXIUM [Concomitant]
  7. MICROZIDE [Concomitant]
  8. SYNTHROID [Concomitant]

REACTIONS (4)
  - CHOLESTASIS [None]
  - HEPATIC NECROSIS [None]
  - HEPATOCELLULAR INJURY [None]
  - HEPATOTOXICITY [None]
